FAERS Safety Report 25538747 (Version 1)
Quarter: 2025Q3

REPORT INFORMATION
  Report Type: Spontaneous
  Country: CN (occurrence: CN)
  Receive Date: 20250710
  Receipt Date: 20250710
  Transmission Date: 20251021
  Serious: Yes (Other)
  Sender: EMD SERONO INC
  Company Number: CN-Merck Healthcare KGaA-2025034816

PATIENT
  Age: 24 Year
  Sex: Female
  Weight: 50 kg

DRUGS (1)
  1. EUTHYROX [Suspect]
     Active Substance: LEVOTHYROXINE SODIUM
     Indication: Hypothyroidism
     Dates: start: 20241105, end: 20250604

REACTIONS (3)
  - Abdominal pain upper [Recovering/Resolving]
  - Epistaxis [Recovering/Resolving]
  - Vomiting [Recovering/Resolving]

NARRATIVE: CASE EVENT DATE: 20241105
